FAERS Safety Report 12527724 (Version 1)
Quarter: 2016Q3

REPORT INFORMATION
  Report Type: Spontaneous
  Country: US (occurrence: US)
  Receive Date: 20160705
  Receipt Date: 20160705
  Transmission Date: 20161109
  Serious: Yes (Life-Threatening, Other)
  Sender: FDA-Public Use
  Company Number: US-ECLAT PHARMACEUTICALS-2016ECL00010

PATIENT

DRUGS (2)
  1. NEOSTIGMINE [Suspect]
     Active Substance: NEOSTIGMINE
     Indication: INTESTINAL TRANSIT TIME
     Dosage: 1 MG DILUTED IN 5 ML OF SALINE OVER 1-2 MINUTES
     Route: 042
  2. POLYETHYLENE GLYCOL 3350 ELECTROLYTE SOLUTION [Concomitant]
     Indication: COLONIC LAVAGE
     Dosage: 2-5 L

REACTIONS (7)
  - Generalised tonic-clonic seizure [Recovered/Resolved]
  - Muscle rigidity [Recovered/Resolved]
  - Hypotension [Recovered/Resolved]
  - Nausea [Recovered/Resolved]
  - Chest pain [Recovered/Resolved]
  - Bradycardia [Recovered/Resolved]
  - Unresponsive to stimuli [Recovered/Resolved]
